FAERS Safety Report 8397884-1 (Version None)
Quarter: 2012Q2

REPORT INFORMATION
  Report Type: 
  Country: None (occurrence: None)
  Receive Date: 20120531
  Receipt Date: 20120529
  Transmission Date: 20120825
  Serious: Yes (Hospitalization, Disabling, Other)
  Sender: FDA-Public Use
  Company Number: PHHY2012NL046012

PATIENT
  Sex: Female
  Weight: 75 kg

DRUGS (6)
  1. TEGRETOL-XR [Suspect]
     Indication: EPILEPSY
     Dosage: 100-200 MG
     Dates: start: 19750301
  2. DIAZEPAM [Concomitant]
     Indication: EPILEPSY
     Dosage: 2.5 ML AS NEEDED
  3. DEPAKENE [Suspect]
     Indication: EPILEPSY
     Dosage: 600-750 MG
     Dates: start: 19750301
  4. TRANSIPEG [Concomitant]
  5. LAMICTAL [Suspect]
     Indication: EPILEPSY
     Dosage: 75-100 MG
     Dates: start: 19750301
  6. NAPROXEN [Concomitant]
     Dosage: 3 DF, QD

REACTIONS (5)
  - SOMNOLENCE [None]
  - MENTAL RETARDATION [None]
  - DAYDREAMING [None]
  - DISTURBANCE IN ATTENTION [None]
  - AGGRESSION [None]
